FAERS Safety Report 20918775 (Version 1)
Quarter: 2022Q2

REPORT INFORMATION
  Report Type: Spontaneous
  Country: US (occurrence: None)
  Receive Date: 20220605
  Receipt Date: 20220605
  Transmission Date: 20220721
  Serious: No
  Sender: FDA-Public Use
  Company Number: None

PATIENT
  Age: 50 Year
  Sex: Male
  Weight: 79.2 kg

DRUGS (9)
  1. PAXLOVID [Suspect]
     Active Substance: NIRMATRELVIR\RITONAVIR
     Indication: COVID-19
     Dates: start: 20220525, end: 20220530
  2. Metformin ER 500mg 1xD PM [Concomitant]
  3. Diabetes Telmisartan 40mg 1xD AM [Concomitant]
  4. Hypertension Rosuvastatin 5mg 1xD Bedtime [Concomitant]
  5. Cholesterol(discontinued during Paxlovid treatment) Ketoconazole 2%1xD [Concomitant]
  6. Athlete^s foot  Ketorolac 0.5% 2xD [Concomitant]
  7. Iritis [Concomitant]
  8. Loratadine 10mg OTC 1xD (Spring) AM [Concomitant]
  9. Allergies One a Day Men^s multivitamin [Concomitant]

REACTIONS (1)
  - COVID-19 [None]

NARRATIVE: CASE EVENT DATE: 20220602
